FAERS Safety Report 9795660 (Version 1)
Quarter: 2014Q1

REPORT INFORMATION
  Report Type: Spontaneous
  Country: US (occurrence: US)
  Receive Date: 20140103
  Receipt Date: 20140103
  Transmission Date: 20141002
  Serious: No
  Sender: FDA-Public Use
  Company Number: US-PFIZER INC-2013373220

PATIENT
  Sex: Female

DRUGS (1)
  1. SYNAREL [Suspect]
     Dosage: UNK

REACTIONS (4)
  - Drug dose omission [Unknown]
  - Mood swings [Unknown]
  - Abnormal behaviour [Unknown]
  - Aggression [Unknown]
